FAERS Safety Report 9269751 (Version 1)
Quarter: 2013Q2

REPORT INFORMATION
  Report Type: Report from Study
  Country: US (occurrence: US)
  Receive Date: 20130503
  Receipt Date: 20130503
  Transmission Date: 20140414
  Serious: Yes (Other)
  Sender: FDA-Public Use
  Company Number: PHEH2011US013324

PATIENT
  Age: 8 Year
  Sex: Female
  Weight: 29.25 kg

DRUGS (3)
  1. TOBI [Suspect]
     Indication: PSEUDOMONAS INFECTION
     Dosage: 300 MG,QD FOR 28 DAYS
     Dates: start: 20110721, end: 20110817
  2. PULMOZYME [Concomitant]
     Dosage: UNK UKN, UNK
  3. CIPRO//CIPROFLOXACIN [Concomitant]
     Indication: PSEUDOMONAS INFECTION
     Dosage: 1 TSP, TWICE DAILY FOR 2 WEEKS

REACTIONS (1)
  - Upper respiratory tract infection [Unknown]
